FAERS Safety Report 10398201 (Version 1)
Quarter: 2014Q1

REPORT INFORMATION
  Report Type: Spontaneous
  Country: US (occurrence: None)
  Receive Date: 20130815
  Receipt Date: 20130815
  Transmission Date: 20141002
  Serious: Yes (Other)
  Sender: FDA-Public Use
  Company Number: ADR-2012-01344

PATIENT
  Sex: Male

DRUGS (4)
  1. BACLOFEN INTRATHECAL [Suspect]
     Indication: CANCER PAIN
  2. BACLOFEN INTRATHECAL [Suspect]
     Indication: POST LAMINECTOMY SYNDROME
  3. DILAUDID [Concomitant]
  4. FENTANYL INTRATHECAL [Concomitant]

REACTIONS (4)
  - No therapeutic response [None]
  - Pain [None]
  - Mobility decreased [None]
  - Drug withdrawal syndrome [None]
